FAERS Safety Report 19743905 (Version 1)
Quarter: 2021Q3

REPORT INFORMATION
  Report Type: Spontaneous
  Country: US (occurrence: US)
  Receive Date: 20210823
  Receipt Date: 20210823
  Transmission Date: 20211014
  Serious: No
  Sender: FDA-Public Use
  Company Number: None

PATIENT
  Age: 3 Year
  Sex: Female

DRUGS (1)
  1. SIROLIMUS ORAL SOLN 1MG/ML APOTEX [Suspect]
     Active Substance: SIROLIMUS
     Indication: LYMPHANGIOMA
     Route: 048
     Dates: end: 20210702

REACTIONS (1)
  - Product preparation issue [None]

NARRATIVE: CASE EVENT DATE: 20210701
